FAERS Safety Report 6396424-6 (Version None)
Quarter: 2009Q4

REPORT INFORMATION
  Report Type: 
  Country: None (occurrence: None)
  Receive Date: 20091012
  Receipt Date: 20091005
  Transmission Date: 20100525
  Serious: Yes (Other)
  Sender: FDA-Public Use
  Company Number: US-JNJFOC-20091002183

PATIENT
  Age: 39 Year
  Sex: Female
  Weight: 48.99 kg

DRUGS (1)
  1. ELMIRON [Suspect]
     Indication: CYSTITIS INTERSTITIAL
     Route: 048
     Dates: start: 20090101, end: 20090101

REACTIONS (3)
  - DISTURBANCE IN ATTENTION [None]
  - HERPES VIRUS INFECTION [None]
  - INFLUENZA LIKE ILLNESS [None]
